FAERS Safety Report 22657963 (Version 1)
Quarter: 2023Q2

REPORT INFORMATION
  Report Type: Spontaneous
  Country: BE (occurrence: BE)
  Receive Date: 20230630
  Receipt Date: 20230630
  Transmission Date: 20230721
  Serious: Yes (Disabling)
  Sender: FDA-Public Use
  Company Number: None

PATIENT
  Age: 26 Year
  Sex: Female
  Weight: 57 kg

DRUGS (2)
  1. MORPHINE [Suspect]
     Active Substance: MORPHINE
     Indication: Product used for unknown indication
     Dosage: TIME INTERVAL: 1 TOTAL
     Route: 065
     Dates: start: 20230616, end: 20230616
  2. KETOROLAC TROMETHAMINE [Suspect]
     Active Substance: KETOROLAC TROMETHAMINE
     Indication: Post lumbar puncture syndrome
     Route: 042
     Dates: start: 20230614, end: 20230617

REACTIONS (3)
  - Nightmare [Recovering/Resolving]
  - Sleep terror [Recovering/Resolving]
  - Metamorphopsia [Recovering/Resolving]

NARRATIVE: CASE EVENT DATE: 20230616
